FAERS Safety Report 14507269 (Version 1)
Quarter: 2018Q1

REPORT INFORMATION
  Report Type: Spontaneous
  Country: US (occurrence: US)
  Receive Date: 20180208
  Receipt Date: 20180208
  Transmission Date: 20180509
  Serious: Yes (Hospitalization)
  Sender: FDA-Public Use
  Company Number: US-SHIRE-US201802527

PATIENT

DRUGS (1)
  1. NATPARA (PARATHYROID HORMONE) [Suspect]
     Active Substance: PARATHYROID HORMONE
     Indication: HYPOPARATHYROIDISM
     Dosage: 75 DOSE UNITS NOT PROVIDED, 1X/DAY:QD
     Route: 050
     Dates: start: 20171107

REACTIONS (3)
  - Foot fracture [Recovering/Resolving]
  - Hypotension [Recovering/Resolving]
  - Fall [Unknown]
